FAERS Safety Report 8065365-0 (Version None)
Quarter: 2012Q1

REPORT INFORMATION
  Report Type: 
  Country: None (occurrence: None)
  Receive Date: 20120124
  Receipt Date: 20120113
  Transmission Date: 20120608
  Serious: Yes (Death, Hospitalization)
  Sender: FDA-Public Use
  Company Number: IT-AMGEN-ITASP2012003066

PATIENT
  Age: 60 Year
  Sex: Female

DRUGS (7)
  1. NATECAL D [Concomitant]
     Dosage: 1 DF, UNK
     Route: 048
  2. ACTONEL [Concomitant]
     Dosage: 150 MG, UNK
     Route: 048
  3. RABEPRAZOLE SODIUM [Concomitant]
     Dosage: 20 MG, UNK
  4. MOBIC [Concomitant]
     Dosage: 15 MG, UNK
     Route: 054
  5. ENBREL [Suspect]
     Indication: RHEUMATOID ARTHRITIS
     Dosage: 50 MG, WEEKLY
     Route: 058
     Dates: start: 20100423
  6. RAMIPRIL [Concomitant]
     Dosage: 2.5 MG, UNK
     Route: 048
  7. METHOTREXATE [Suspect]
     Indication: RHEUMATOID ARTHRITIS
     Dosage: 7.5 MG, WEEKLY
     Route: 048
     Dates: start: 20030325, end: 20100930

REACTIONS (4)
  - STREPTOCOCCAL SEPSIS [None]
  - PLEURAL EFFUSION [None]
  - CARDIO-RESPIRATORY ARREST [None]
  - ACUTE PULMONARY OEDEMA [None]
